FAERS Safety Report 19261814 (Version 1)
Quarter: 2021Q2

REPORT INFORMATION
  Report Type: Spontaneous
  Country: US (occurrence: US)
  Receive Date: 20210515
  Receipt Date: 20210515
  Transmission Date: 20210717
  Serious: Yes (Hospitalization, Other)
  Sender: FDA-Public Use
  Company Number: US-LUPIN PHARMACEUTICALS INC.-2021-06938

PATIENT
  Age: 87 Year
  Sex: Male

DRUGS (2)
  1. OXYCODONE [Suspect]
     Active Substance: OXYCODONE
     Dosage: UNK
     Route: 065
  2. OXYCODONE [Suspect]
     Active Substance: OXYCODONE
     Indication: PAIN
     Dosage: SLOW TAPER
     Route: 065

REACTIONS (10)
  - Subdural haematoma [Recovering/Resolving]
  - Drug use disorder [Unknown]
  - Drug dependence [Unknown]
  - Emotional distress [Recovering/Resolving]
  - Delirium [Recovering/Resolving]
  - Fall [Unknown]
  - Irritability [Recovering/Resolving]
  - Agitation [Recovering/Resolving]
  - Intentional product misuse [Unknown]
  - Drug withdrawal syndrome [Unknown]
